FAERS Safety Report 5640292-4 (Version None)
Quarter: 2008Q1

REPORT INFORMATION
  Report Type: 
  Country: None (occurrence: None)
  Receive Date: 20080225
  Receipt Date: 20080215
  Transmission Date: 20080703
  Serious: Yes (Life-Threatening, Hospitalization)
  Sender: FDA-Public Use
  Company Number: FR-JNJFOC-20080203741

PATIENT
  Age: 73 Year
  Sex: Male

DRUGS (3)
  1. DECITABINE (DECITABINE) LYOPHILIZED POWDER [Suspect]
     Indication: ACUTE MYELOID LEUKAEMIA
     Dosage: 20 MG/M2, INTRAVENOUS
     Route: 042
     Dates: start: 20070430, end: 20080208
  2. IRBESARTAN (IRBESARTAN) UNSPECIFIED [Concomitant]
  3. ACEBUTOLOL (ACEBUTOLOL) UNSPECIFIED [Concomitant]

REACTIONS (3)
  - HEADACHE [None]
  - OTITIS EXTERNA [None]
  - PYREXIA [None]
